FAERS Safety Report 9123515 (Version 1)
Quarter: 2013Q1

REPORT INFORMATION
  Report Type: Spontaneous
  Country: US (occurrence: US)
  Receive Date: 20130227
  Receipt Date: 20130227
  Transmission Date: 20140127
  Serious: No
  Sender: FDA-Public Use
  Company Number: US-BAYER-2013-022363

PATIENT
  Age: 31 Year
  Sex: Female
  Weight: 73.92 kg

DRUGS (4)
  1. ALEVE CAPLET/TABLET,MIDOL EXTENDED RELIEF CAPLET [Suspect]
     Indication: DYSMENORRHOEA
     Dosage: 2 DF, UNK
     Route: 048
     Dates: start: 20130204
  2. VISTARIL [Concomitant]
  3. CLONAZEPAM [Concomitant]
  4. EYE VITAMINS WITH LUTEIN [Concomitant]

REACTIONS (2)
  - Initial insomnia [Not Recovered/Not Resolved]
  - Insomnia [Not Recovered/Not Resolved]
